FAERS Safety Report 18775922 (Version 11)
Quarter: 2025Q2

REPORT INFORMATION
  Report Type: Report from Study
  Country: US (occurrence: US)
  Receive Date: 20210122
  Receipt Date: 20250526
  Transmission Date: 20250716
  Serious: Yes (Other)
  Sender: TAKEDA
  Company Number: US-TAKEDA-US202032623

PATIENT
  Sex: Female

DRUGS (4)
  1. HUMAN IMMUNOGLOBULIN G [Suspect]
     Active Substance: HUMAN IMMUNOGLOBULIN G
     Indication: IgG deficiency
     Dosage: 30 GRAM, Q4WEEKS
  2. GAMMAGARD S/D [Suspect]
     Active Substance: HUMAN IMMUNOGLOBULIN G
     Indication: IgG deficiency
     Dosage: 30 GRAM, MONTHLY
  3. GAMMAGARD S/D [Suspect]
     Active Substance: HUMAN IMMUNOGLOBULIN G
     Indication: Primary immunodeficiency syndrome
  4. PANZYGA [Concomitant]
     Active Substance: HUMAN IMMUNOGLOBULIN G

REACTIONS (45)
  - Compression fracture [Unknown]
  - Renal dysplasia [Unknown]
  - Barrett^s oesophagus [Unknown]
  - Neoplasm malignant [Unknown]
  - Plasma cell myeloma [Unknown]
  - Nephrolithiasis [Unknown]
  - Intracranial lipoma [Unknown]
  - Intracranial aneurysm [Unknown]
  - Anaphylactic reaction [Unknown]
  - Renal failure [Unknown]
  - Blood immunoglobulin A increased [Unknown]
  - COVID-19 [Unknown]
  - Pancreatic disorder [Unknown]
  - Adrenal neoplasm [Unknown]
  - Feeling jittery [Unknown]
  - Skin lesion [Unknown]
  - Hepatic pain [Unknown]
  - White blood cell count increased [Unknown]
  - Cortisol decreased [Unknown]
  - Liver disorder [Unknown]
  - Illness [Unknown]
  - Spinal disorder [Unknown]
  - Renal cyst [Unknown]
  - Hepatic cyst [Unknown]
  - Gastrointestinal dysplasia [Unknown]
  - Pancreatic cyst [Unknown]
  - Blood glucose abnormal [Unknown]
  - Endocrine disorder [Unknown]
  - Post procedural complication [Unknown]
  - Heart rate increased [Unknown]
  - Feeling abnormal [Unknown]
  - Blood pressure increased [Unknown]
  - Fatigue [Unknown]
  - Nausea [Unknown]
  - Asthenia [Unknown]
  - Headache [Unknown]
  - Breast mass [Unknown]
  - Poor venous access [Unknown]
  - Dysphagia [Unknown]
  - Pituitary tumour benign [Unknown]
  - Osteoporosis [Unknown]
  - Vaginal haemorrhage [Unknown]
  - Back pain [Unknown]
  - Malaise [Unknown]
  - Hyperhidrosis [Unknown]

NARRATIVE: CASE EVENT DATE: 20160101
